FAERS Safety Report 14008166 (Version 1)
Quarter: 2017Q3

REPORT INFORMATION
  Report Type: Spontaneous
  Country: US (occurrence: None)
  Receive Date: 20170924
  Receipt Date: 20170924
  Transmission Date: 20171128
  Serious: Yes (Hospitalization)
  Sender: FDA-Public Use
  Company Number: None

PATIENT
  Age: 60 Year
  Sex: Male
  Weight: 87.1 kg

DRUGS (1)
  1. CISPLATIN. [Suspect]
     Active Substance: CISPLATIN
     Dates: end: 20080709

REACTIONS (12)
  - Necrosis [None]
  - Dysphagia [None]
  - Inflammation [None]
  - Aspiration [None]
  - Infection [None]
  - Weight decreased [None]
  - Chondropathy [None]
  - Speech disorder [None]
  - Dyspnoea [None]
  - Hyperplasia [None]
  - Papilloma [None]
  - Laryngoscopy abnormal [None]

NARRATIVE: CASE EVENT DATE: 20170410
